FAERS Safety Report 25999233 (Version 1)
Quarter: 2025Q4

REPORT INFORMATION
  Report Type: Spontaneous
  Country: EU (occurrence: EU)
  Receive Date: 20251105
  Receipt Date: 20251105
  Transmission Date: 20260118
  Serious: Yes (Other)
  Sender: ACCORD
  Company Number: EU-MLMSERVICE-20251017-PI679564-00218-1

PATIENT
  Age: 78 Year
  Sex: Female

DRUGS (2)
  1. METHOTREXATE [Suspect]
     Active Substance: METHOTREXATE
     Indication: Rheumatoid arthritis
     Route: 048
  2. BARICITINIB [Concomitant]
     Active Substance: BARICITINIB
     Indication: Rheumatoid arthritis
     Route: 048

REACTIONS (4)
  - Tibia fracture [Recovering/Resolving]
  - Osteoporosis [Recovering/Resolving]
  - Thoracic vertebral fracture [Recovering/Resolving]
  - Ankle fracture [Not Recovered/Not Resolved]
